FAERS Safety Report 13029465 (Version 1)
Quarter: 2016Q4

REPORT INFORMATION
  Report Type: Report from Study
  Country: IN (occurrence: IN)
  Receive Date: 20161215
  Receipt Date: 20161215
  Transmission Date: 20170207
  Serious: Yes (Hospitalization)
  Sender: FDA-Public Use
  Company Number: IN-ACCORD-046488

PATIENT

DRUGS (11)
  1. PREDNISOLONE. [Suspect]
     Active Substance: PREDNISOLONE
     Indication: RENAL TRANSPLANT
     Dosage: POST-TRANSPLANTATION DOSE WAS 50 MG/D, TAPERED TO 20 MG/D BY THE END OF 1 MONTH UNTIL 7.5 MG/D
  2. VALGANCICLOVIR/VALGANCICLOVIR HYDROCHLORIDE [Concomitant]
     Indication: ANTIVIRAL PROPHYLAXIS
  3. MYCOPHENOLIC ACID. [Suspect]
     Active Substance: MYCOPHENOLIC ACID
     Indication: RENAL TRANSPLANT
     Dosage: AFTER 6 MONTHS POST-TRANSPLANTATION, THE MMF DOSE WAS REDUCED TO 1 G/DAY.
  4. SODIUM CHLORIDE. [Concomitant]
     Active Substance: SODIUM CHLORIDE
     Dosage: STRENGTH: 0.9%
  5. ANTITHYMOCYTE IMMUNOGLOBULIN [Concomitant]
     Active Substance: THYMOCYTE IMMUNE GLOBULIN NOS
     Indication: IMMUNOMODULATORY THERAPY
     Dosage: IN 2 DIVIDED DOSES ON DAY 0 AND DAY 1 POST-TRANSPLANTATION
  6. RITUXIMAB [Concomitant]
     Active Substance: RITUXIMAB
     Indication: IMMUNOMODULATORY THERAPY
     Dosage: ANTI-CD 20, 200 MG: ADMINISTERED ON DAY-15
  7. METHYLPREDNISOLONE. [Concomitant]
     Active Substance: METHYLPREDNISOLONE
     Indication: IMMUNOMODULATORY THERAPY
     Dosage: GIVEN IN 2 DOSES OF 500 MG ON DAY -1 AND DAY 0
  8. HYDROCORTISONE. [Concomitant]
     Active Substance: HYDROCORTISONE
     Indication: PREMEDICATION
  9. SULFAMETHOXAZOLE/TRIMETHOPRIM [Concomitant]
     Indication: ANTIFUNGAL PROPHYLAXIS
     Dosage: SULPHAMETHOXAZOLE - 400 MG TRIMETHOPRIM - 80 MG
  10. TACROLIMUS. [Suspect]
     Active Substance: TACROLIMUS
     Indication: RENAL TRANSPLANT
     Dosage: TARGET TROUGH LEVEL: 10-12 NG/ML, LATER REDUCED TO 5-8 NG/ML AT 3 MONTHS AND 3-5 NG/ML AT 6 MONTHS
  11. IMMUNOGLOBULIN [Concomitant]
     Active Substance: HUMAN IMMUNOGLOBULIN G
     Indication: IMMUNOMODULATORY THERAPY
     Dosage: LOW-DOSE IVIG ADMINISTERED AFTER EACH APHERESIS SESSION?TOTAL DOSE: 10-15 G GIVEN
     Route: 042

REACTIONS (2)
  - Pyelonephritis acute [Recovering/Resolving]
  - Renal impairment [Unknown]
